FAERS Safety Report 21935775 (Version 3)
Quarter: 2024Q2

REPORT INFORMATION
  Report Type: Report from Study
  Country: US (occurrence: US)
  Receive Date: 20230201
  Receipt Date: 20240422
  Transmission Date: 20240716
  Serious: No
  Sender: FDA-Public Use
  Company Number: US-BRISTOL-MYERS SQUIBB COMPANY-2023-013950

PATIENT
  Age: 74 Year
  Sex: Female

DRUGS (1)
  1. SOTYKTU [Suspect]
     Active Substance: DEUCRAVACITINIB
     Indication: Psoriasis
     Route: 048
     Dates: start: 202212

REACTIONS (4)
  - Oral pain [Not Recovered/Not Resolved]
  - Acne [Unknown]
  - Rash [Unknown]
  - Drug ineffective [Unknown]
